FAERS Safety Report 24080165 (Version 2)
Quarter: 2024Q4

REPORT INFORMATION
  Report Type: Spontaneous
  Country: US (occurrence: US)
  Receive Date: 20240711
  Receipt Date: 20241019
  Transmission Date: 20250115
  Serious: Yes (Hospitalization, Other)
  Sender: SANDOZ
  Company Number: US-SANDOZ-SDZ2024US063118

PATIENT
  Age: 0 Year
  Sex: Female
  Weight: 9.9 kg

DRUGS (36)
  1. REMODULIN [Suspect]
     Active Substance: TREPROSTINIL
     Indication: Pulmonary arterial hypertension
     Dosage: 0.0209 UG/KG, CONT
     Route: 058
     Dates: start: 202403
  2. REMODULIN [Suspect]
     Active Substance: TREPROSTINIL
     Dosage: 0.0222 UG/KG, CONT
     Route: 058
     Dates: start: 20240508, end: 202405
  3. REMODULIN [Suspect]
     Active Substance: TREPROSTINIL
     Dosage: 0.0234 UG/KG, CONT
     Route: 058
     Dates: start: 2024, end: 20240508
  4. REMODULIN [Suspect]
     Active Substance: TREPROSTINIL
     Dosage: 0.0316 UG/KG (AT AN INFUSION RATE OF 0.64 ML/HR), CONT
     Route: 058
     Dates: start: 20240607, end: 202406
  5. REMODULIN [Suspect]
     Active Substance: TREPROSTINIL
     Dosage: 0.0326 UG/KG, CONT
     Route: 058
     Dates: start: 202405, end: 2024
  6. REMODULIN [Suspect]
     Active Substance: TREPROSTINIL
     Dosage: 0.0376 UG/KG, CONT
     Route: 058
     Dates: start: 202406, end: 202406
  7. REMODULIN [Suspect]
     Active Substance: TREPROSTINIL
     Dosage: 0.0382 ?G/KG, CONTINUING
     Route: 058
     Dates: start: 2024, end: 2024
  8. REMODULIN [Suspect]
     Active Substance: TREPROSTINIL
     Dosage: 0.0409 UG/KG, CONT
     Route: 058
     Dates: start: 20240627, end: 2024
  9. REMODULIN [Suspect]
     Active Substance: TREPROSTINIL
     Dosage: 0.0413 ?G/KG, CONTINUING
     Route: 058
     Dates: start: 2024
  10. REMODULIN [Suspect]
     Active Substance: TREPROSTINIL
     Dosage: 0.0456 ?G/KG, CONTINUING
     Route: 058
     Dates: start: 2024, end: 2024
  11. REMODULIN [Suspect]
     Active Substance: TREPROSTINIL
     Dosage: UNK (AT AN INFUSION RATE OF 0.036 ML/HR), CONTINUING,
     Route: 058
     Dates: start: 202406, end: 202406
  12. REMODULIN [Suspect]
     Active Substance: TREPROSTINIL
     Dosage: UNK, (AT AN INFUSION RATE OF 0.034 ML/HR), CONTINUING
     Route: 058
     Dates: start: 202406, end: 202406
  13. REMODULIN [Suspect]
     Active Substance: TREPROSTINIL
     Dosage: UNK, CONTINUING
     Route: 058
     Dates: start: 202403
  14. ZOFRAN [Suspect]
     Active Substance: ONDANSETRON HYDROCHLORIDE
     Indication: Vomiting
     Dosage: UNK
     Route: 065
  15. ACETYLCYSTEINE [Concomitant]
     Active Substance: ACETYLCYSTEINE
     Indication: Product used for unknown indication
     Dosage: UNK
     Route: 065
  16. ALBUTEROL [Concomitant]
     Active Substance: ALBUTEROL
     Indication: Product used for unknown indication
     Dosage: UNK
     Route: 065
  17. AMBRISENTAN [Concomitant]
     Active Substance: AMBRISENTAN
     Indication: Product used for unknown indication
     Dosage: UNK
     Route: 065
  18. BUDESONIDE [Concomitant]
     Active Substance: BUDESONIDE
     Indication: Product used for unknown indication
     Dosage: UNK
     Route: 065
  19. CALCIUM CARBONATE [Concomitant]
     Active Substance: CALCIUM CARBONATE
     Indication: Product used for unknown indication
     Dosage: UNK
     Route: 065
  20. CAROSPIR [Concomitant]
     Active Substance: SPIRONOLACTONE
     Indication: Product used for unknown indication
     Dosage: UNK
     Route: 065
  21. Ciprodex otico [Concomitant]
     Indication: Product used for unknown indication
     Dosage: UNK
     Route: 065
  22. CLONIDINE HYDROCHLORIDE [Concomitant]
     Active Substance: CLONIDINE HYDROCHLORIDE
     Indication: Product used for unknown indication
     Dosage: UNK
     Route: 065
  23. CORTEF [Concomitant]
     Active Substance: HYDROCORTISONE
     Indication: Product used for unknown indication
     Dosage: UNK
     Route: 065
  24. DIURIL [Concomitant]
     Active Substance: CHLOROTHIAZIDE
     Indication: Product used for unknown indication
     Dosage: UNK
     Route: 065
  25. ERYTHROMYCIN [Concomitant]
     Active Substance: ERYTHROMYCIN
     Indication: Product used for unknown indication
     Dosage: UNK
     Route: 065
  26. LASIX [Concomitant]
     Active Substance: FUROSEMIDE
     Indication: Product used for unknown indication
     Dosage: UNK
     Route: 065
  27. LEVAQUIN [Concomitant]
     Active Substance: LEVOFLOXACIN
     Indication: Product used for unknown indication
     Dosage: UNK
     Route: 065
  28. NYSTATIN [Concomitant]
     Active Substance: NYSTATIN
     Indication: Product used for unknown indication
     Dosage: UNK
     Route: 065
  29. OMEPRAZOLE [Concomitant]
     Active Substance: OMEPRAZOLE
     Indication: Product used for unknown indication
     Dosage: UNK
     Route: 065
  30. PEPCID [Concomitant]
     Active Substance: FAMOTIDINE
     Indication: Product used for unknown indication
     Dosage: UNK
     Route: 065
  31. CYPROHEPTADINE HYDROCHLORIDE [Concomitant]
     Active Substance: CYPROHEPTADINE HYDROCHLORIDE
     Indication: Product used for unknown indication
     Dosage: UNK
     Route: 065
  32. SODIUM CHLORIDE [Concomitant]
     Active Substance: SODIUM CHLORIDE
     Indication: Product used for unknown indication
     Dosage: UNK
     Route: 065
  33. SYMBICORT [Concomitant]
     Active Substance: BUDESONIDE\FORMOTEROL FUMARATE DIHYDRATE
     Indication: Product used for unknown indication
     Dosage: UNK
     Route: 065
  34. TADALAFIL [Concomitant]
     Active Substance: TADALAFIL
     Indication: Product used for unknown indication
     Dosage: UNK
     Route: 065
  35. TOBRAMYCIN [Concomitant]
     Active Substance: TOBRAMYCIN\TOBRAMYCIN SULFATE
     Indication: Product used for unknown indication
     Dosage: UNK
     Route: 065
  36. VALIUM [Concomitant]
     Active Substance: DIAZEPAM
     Indication: Product used for unknown indication
     Dosage: UNK
     Route: 065

REACTIONS (13)
  - Vomiting [Recovering/Resolving]
  - Hypoxia [Recovered/Resolved]
  - Pulmonary arterial hypertension [Unknown]
  - Acute respiratory failure [Unknown]
  - Pneumonia pseudomonal [Unknown]
  - Device dislocation [Unknown]
  - Infusion site swelling [Unknown]
  - Gastrointestinal motility disorder [Unknown]
  - Drug intolerance [Unknown]
  - Oxygen saturation decreased [Recovered/Resolved]
  - Tracheitis [Recovered/Resolved]
  - Therapy non-responder [Unknown]
  - Nausea [Recovered/Resolved]

NARRATIVE: CASE EVENT DATE: 20240610
